FAERS Safety Report 4900783-8 (Version None)
Quarter: 2006Q1

REPORT INFORMATION
  Report Type: 
  Country: None (occurrence: None)
  Receive Date: 20060201
  Receipt Date: 20060119
  Transmission Date: 20060701
  Serious: Yes (Other)
  Sender: FDA-Public Use
  Company Number: 2006JP000128

PATIENT
  Age: 55 Year
  Sex: Female

DRUGS (1)
  1. PROGRAF [Suspect]
     Indication: BONE MARROW TRANSPLANT

REACTIONS (8)
  - BONE MARROW FAILURE [None]
  - DRUG TOXICITY [None]
  - ENCEPHALITIS HERPES [None]
  - ENGRAFTMENT SYNDROME [None]
  - GRAFT VERSUS HOST DISEASE [None]
  - HERPES ZOSTER [None]
  - NAUSEA [None]
  - STEM CELL TRANSPLANT [None]
